FAERS Safety Report 4588164-0 (Version None)
Quarter: 2005Q1

REPORT INFORMATION
  Report Type: 
  Country: None (occurrence: None)
  Receive Date: 20050221
  Receipt Date: 20041209
  Transmission Date: 20050727
  Serious: Yes (Hospitalization)
  Sender: FDA-Public Use
  Company Number: CA-GLAXOSMITHKLINE-A0536925A

PATIENT
  Age: 63 Year
  Sex: Male

DRUGS (3)
  1. AVODART [Suspect]
     Indication: ILL-DEFINED DISORDER
     Dosage: .5MG PER DAY
     Route: 048
     Dates: start: 20040924
  2. CIPRO [Suspect]
     Dates: start: 20041207
  3. UNSPECIFIED MEDICATIONS [Concomitant]

REACTIONS (3)
  - HYPERSENSITIVITY [None]
  - POLLAKIURIA [None]
  - THERAPEUTIC RESPONSE DECREASED [None]
